FAERS Safety Report 25981092 (Version 1)
Quarter: 2025Q4

REPORT INFORMATION
  Report Type: Spontaneous
  Country: US (occurrence: None)
  Receive Date: 20251030
  Receipt Date: 20251030
  Transmission Date: 20260118
  Serious: Yes (Hospitalization)
  Sender: FDA-CTU
  Company Number: None

PATIENT
  Age: 44 Year
  Sex: Female
  Weight: 126 kg

DRUGS (2)
  1. OCTAGAM IMMUNE GLOBULIN (HUMAN) [Suspect]
     Active Substance: HUMAN IMMUNOGLOBULIN G
     Indication: Iridocyclitis
     Dosage: FREQUENCY : MONTHLY;?
     Route: 042
     Dates: start: 20250821, end: 20251028
  2. OCTAGAM IMMUNE GLOBULIN (HUMAN) [Suspect]
     Active Substance: HUMAN IMMUNOGLOBULIN G
     Indication: Iridocyclitis
     Dosage: FREQUENCY : MONTHLY;?
     Route: 042
     Dates: start: 20250821, end: 20251028

REACTIONS (5)
  - Infusion related reaction [None]
  - Blood pressure abnormal [None]
  - Therapy interrupted [None]
  - Thrombosis [None]
  - Pulmonary embolism [None]

NARRATIVE: CASE EVENT DATE: 20251023
